FAERS Safety Report 23614537 (Version 1)
Quarter: 2024Q1

REPORT INFORMATION
  Report Type: Report from Study
  Country: CO (occurrence: CO)
  Receive Date: 20240311
  Receipt Date: 20240311
  Transmission Date: 20240409
  Serious: Yes (Hospitalization, Other)
  Sender: FDA-Public Use
  Company Number: CO-JNJFOC-20240134102

PATIENT
  Age: 40 Year
  Sex: Male
  Weight: 75 kg

DRUGS (9)
  1. INVEGA SUSTENNA [Suspect]
     Active Substance: PALIPERIDONE PALMITATE
     Indication: Schizophrenia
     Route: 030
     Dates: start: 20231204
  2. INVEGA SUSTENNA [Suspect]
     Active Substance: PALIPERIDONE PALMITATE
  3. INVEGA SUSTENNA [Suspect]
     Active Substance: PALIPERIDONE PALMITATE
  4. LEVOMEPROMAZINE [Concomitant]
     Active Substance: LEVOMEPROMAZINE
  5. OLANZAPINE [Concomitant]
     Active Substance: OLANZAPINE
  6. LEVETIRACETAM [Concomitant]
     Active Substance: LEVETIRACETAM
  7. BIPERIDEN [Concomitant]
     Active Substance: BIPERIDEN
  8. VALPROIC ACID [Concomitant]
     Active Substance: VALPROIC ACID
  9. OMEPRAZOLE [Concomitant]
     Active Substance: OMEPRAZOLE

REACTIONS (7)
  - Seizure [Unknown]
  - Hospitalisation [Recovered/Resolved]
  - Polydipsia [Not Recovered/Not Resolved]
  - Anxiety [Unknown]
  - Hyponatraemia [Unknown]
  - Abnormal behaviour [Not Recovered/Not Resolved]
  - Off label use [Unknown]

NARRATIVE: CASE EVENT DATE: 20231201
